FAERS Safety Report 7330067-2 (Version None)
Quarter: 2011Q1

REPORT INFORMATION
  Report Type: 
  Country: None (occurrence: None)
  Receive Date: 20110303
  Receipt Date: 20100726
  Transmission Date: 20110831
  Serious: No
  Sender: FDA-Public Use
  Company Number: US-BAYER-201031801NA

PATIENT
  Sex: Female

DRUGS (1)
  1. MIRENA [Suspect]
     Dosage: 20 MCG/24HR, UNK
     Route: 015

REACTIONS (5)
  - MEDICAL DEVICE COMPLICATION [None]
  - PELVIC PAIN [None]
  - CERVICAL DISCHARGE [None]
  - ABDOMINAL DISCOMFORT [None]
  - AMENORRHOEA [None]
